FAERS Safety Report 4906053-6 (Version None)
Quarter: 2006Q1

REPORT INFORMATION
  Report Type: 
  Country: None (occurrence: None)
  Receive Date: 20060207
  Receipt Date: 20060125
  Transmission Date: 20060701
  Serious: Yes (Hospitalization)
  Sender: FDA-Public Use
  Company Number: GXKR2006IN00705

PATIENT
  Age: 17 Year
  Sex: Male
  Weight: 2.7 kg

DRUGS (3)
  1. CEFTRIAXONE [Suspect]
     Indication: SEPSIS
     Dosage: 50 MG/KG, BID,
  2. AMIKACIN [Suspect]
     Indication: SEPSIS
     Dosage: 7.5 MG/KG, BID,
  3. PHYTONADIONE [Concomitant]

REACTIONS (8)
  - ACTIVATED PARTIAL THROMBOPLASTIN TIME PROLONGED [None]
  - C-REACTIVE PROTEIN INCREASED [None]
  - CHOLESTASIS [None]
  - FEEDING DISORDER NEONATAL [None]
  - HAEMOGLOBIN DECREASED [None]
  - LETHARGY [None]
  - NEONATAL DISORDER [None]
  - PROTHROMBIN TIME PROLONGED [None]
